FAERS Safety Report 14304080 (Version 1)
Quarter: 2017Q4

REPORT INFORMATION
  Report Type: Spontaneous
  Country: IT (occurrence: IT)
  Receive Date: 20171219
  Receipt Date: 20171219
  Transmission Date: 20180321
  Serious: Yes (Death)
  Sender: FDA-Public Use
  Company Number: IT-OTSUKA-DJ20105445

PATIENT
  Sex: Male
  Weight: 260 kg

DRUGS (1)
  1. OPC-14597 [Suspect]
     Active Substance: CILOSTAZOL
     Indication: BIPOLAR DISORDER
     Dosage: 1 DF, UNK
     Route: 051

REACTIONS (1)
  - Death [Fatal]

NARRATIVE: CASE EVENT DATE: 20100917
